FAERS Safety Report 6857777-5 (Version None)
Quarter: 2010Q3

REPORT INFORMATION
  Report Type: 
  Country: None (occurrence: None)
  Receive Date: 20100719
  Receipt Date: 20080124
  Transmission Date: 20110219
  Serious: No
  Sender: FDA-Public Use
  Company Number: US-PFIZER INC-2008009369

PATIENT
  Age: 70 Year

DRUGS (2)
  1. CHANTIX [Suspect]
  2. ANTI-ASTHMATICS [Concomitant]

REACTIONS (1)
  - INSOMNIA [None]
